FAERS Safety Report 4927405-4 (Version None)
Quarter: 2006Q1

REPORT INFORMATION
  Report Type: 
  Country: None (occurrence: None)
  Receive Date: 20060228
  Receipt Date: 20051121
  Transmission Date: 20060701
  Serious: Yes (Other)
  Sender: FDA-Public Use
  Company Number: US-GLAXOSMITHKLINE-A0583477A

PATIENT
  Age: 49 Year
  Sex: Female

DRUGS (4)
  1. IMITREX [Suspect]
     Indication: MIGRAINE
     Dosage: 1INJ AS REQUIRED
     Route: 058
     Dates: start: 20051116, end: 20051101
  2. FROVA [Concomitant]
  3. SYNTHROID [Concomitant]
  4. EFFEXOR [Concomitant]

REACTIONS (1)
  - ATRIAL FIBRILLATION [None]
